FAERS Safety Report 7264998-9 (Version None)
Quarter: 2011Q1

REPORT INFORMATION
  Report Type: 
  Country: None (occurrence: None)
  Receive Date: 20110131
  Receipt Date: 20101231
  Transmission Date: 20110831
  Serious: Yes (Other)
  Sender: FDA-Public Use
  Company Number: US-BAYER-201040769NA

PATIENT
  Sex: Female
  Weight: 85.714 kg

DRUGS (1)
  1. MIRENA [Suspect]
     Indication: PRODUCT USED FOR UNKNOWN INDICATION
     Dosage: FREQUENCY CONTINUOUS
     Route: 015
     Dates: start: 20100508, end: 20101203

REACTIONS (4)
  - PREGNANCY WITH CONTRACEPTIVE DEVICE [None]
  - MENSTRUATION DELAYED [None]
  - MUSCLE SPASMS [None]
  - ABORTION SPONTANEOUS [None]
